FAERS Safety Report 24980725 (Version 1)
Quarter: 2025Q1

REPORT INFORMATION
  Report Type: Report from Study
  Country: GR (occurrence: GR)
  Receive Date: 20250218
  Receipt Date: 20250218
  Transmission Date: 20250409
  Serious: Yes (Other)
  Sender: ROCHE
  Company Number: GR-ROCHE-10000207065

PATIENT

DRUGS (1)
  1. TOCILIZUMAB [Suspect]
     Active Substance: TOCILIZUMAB
     Indication: COVID-19
     Route: 040

REACTIONS (5)
  - Infection [Unknown]
  - Sepsis [Unknown]
  - Septic shock [Unknown]
  - Pulmonary embolism [Unknown]
  - Off label use [Unknown]
